FAERS Safety Report 6232283-X (Version None)
Quarter: 2009Q2

REPORT INFORMATION
  Report Type: 
  Country: None (occurrence: None)
  Receive Date: 20090617
  Receipt Date: 20090605
  Transmission Date: 20091009
  Serious: Yes (Death, Hospitalization)
  Sender: FDA-Public Use
  Company Number: FR-PFIZER INC-2009220085

PATIENT
  Age: 60 Year

DRUGS (5)
  1. SUNITINIB MALATE [Suspect]
     Indication: HEPATIC NEOPLASM MALIGNANT
     Dosage: 37.5 MG, DAILY
     Route: 048
     Dates: start: 20090506, end: 20090527
  2. SPIRONOLACTONE [Concomitant]
     Indication: HYPERTENSION
  3. VITAMIN B1 AND B6 [Concomitant]
  4. PROPRANOLOL [Concomitant]
     Indication: HYPERTENSION
  5. OMEPRAZOL [Concomitant]

REACTIONS (1)
  - HEPATIC ENCEPHALOPATHY [None]
